FAERS Safety Report 12193849 (Version 1)
Quarter: 2016Q1

REPORT INFORMATION
  Report Type: Spontaneous
  Country: CZ (occurrence: CZ)
  Receive Date: 20160321
  Receipt Date: 20160321
  Transmission Date: 20160526
  Serious: Yes (Hospitalization, Other)
  Sender: FDA-Public Use
  Company Number: CZ-ROCHE-1727302

PATIENT
  Sex: Female

DRUGS (3)
  1. AVASTIN [Suspect]
     Active Substance: BEVACIZUMAB
     Route: 050
     Dates: start: 20150220
  2. AVASTIN [Suspect]
     Active Substance: BEVACIZUMAB
     Route: 050
     Dates: start: 201508
  3. AVASTIN [Suspect]
     Active Substance: BEVACIZUMAB
     Indication: AGE-RELATED MACULAR DEGENERATION
     Route: 050
     Dates: start: 20141119

REACTIONS (7)
  - Visual impairment [Unknown]
  - Intraocular pressure increased [Unknown]
  - Off label use [Unknown]
  - Vitreous haemorrhage [Unknown]
  - Eye inflammation [Not Recovered/Not Resolved]
  - Suspected transmission of an infectious agent via product [Unknown]
  - Eye pain [Unknown]
